FAERS Safety Report 9090213 (Version 2)
Quarter: 2013Q1

REPORT INFORMATION
  Report Type: Spontaneous
  Country: US (occurrence: US)
  Receive Date: 20130201
  Receipt Date: 20130301
  Transmission Date: 20140127
  Serious: Yes (Other)
  Sender: FDA-Public Use
  Company Number: US-NAPPMUNDI-USA-2013-0097885

PATIENT
  Sex: Female

DRUGS (1)
  1. BUTRANS [Suspect]
     Indication: MYOFASCIAL PAIN SYNDROME
     Dosage: 20 MCG/HR, WEEKLY
     Route: 062
     Dates: start: 201206, end: 201208

REACTIONS (4)
  - Application site burn [Unknown]
  - Erythema [Recovered/Resolved]
  - Skin oedema [Recovered/Resolved]
  - Skin exfoliation [Recovered/Resolved]
